FAERS Safety Report 12579914 (Version 6)
Quarter: 2020Q3

REPORT INFORMATION
  Report Type: Report from Study
  Country: JP (occurrence: JP)
  Receive Date: 20160721
  Receipt Date: 20160930
  Transmission Date: 20201105
  Serious: Yes (Hospitalization)
  Sender: FDA-Public Use
  Company Number: JP-ROCHE-1794704

PATIENT
  Age: 52 Year
  Sex: Female

DRUGS (27)
  1. ZOLPIDEM TARTRATE. [Concomitant]
     Active Substance: ZOLPIDEM TARTRATE
     Indication: INSOMNIA
     Route: 048
     Dates: start: 20150414, end: 20151014
  2. RANMARK [Concomitant]
     Active Substance: DENOSUMAB
     Indication: METASTASES TO BONE
     Route: 058
  3. AMERGE [Concomitant]
     Active Substance: NARATRIPTAN HYDROCHLORIDE
     Indication: MIGRAINE
     Route: 048
     Dates: start: 20150810
  4. XYLOCAINE [Concomitant]
     Active Substance: LIDOCAINE HYDROCHLORIDE
     Dosage: DOSAGE IS UNCERTAIN.
     Route: 065
     Dates: start: 20150717, end: 20151207
  5. CLARITHROMYCIN. [Concomitant]
     Active Substance: CLARITHROMYCIN
     Dosage: DOSAGE IS UNCERTAIN.
     Route: 065
     Dates: start: 20160129, end: 20160201
  6. CALONAL [Concomitant]
     Active Substance: ACETAMINOPHEN
     Indication: PAIN
     Route: 048
  7. ASPARA?CA [Concomitant]
     Active Substance: CALCIUM ASPARTATE
     Indication: PROPHYLAXIS
     Route: 048
     Dates: start: 20150522
  8. CARBOCISTEINE [Concomitant]
     Active Substance: CARBOCYSTEINE
     Route: 048
     Dates: start: 20160905
  9. ALECTINIB. [Suspect]
     Active Substance: ALECTINIB
     Indication: NON-SMALL CELL LUNG CANCER
     Route: 048
     Dates: start: 20150522, end: 20160810
  10. URSODEOXYCHOLIC ACID [Suspect]
     Active Substance: URSODIOL
     Indication: ALANINE AMINOTRANSFERASE INCREASED
  11. MYSLEE [Concomitant]
     Active Substance: ZOLPIDEM TARTRATE
     Dosage: DOSAGE IS UNCERTAIN.
     Route: 048
  12. TAKECAB [Concomitant]
     Active Substance: VONOPRAZAN FUMARATE
     Dosage: DOSAGE IS UNCERTAIN.
     Route: 048
     Dates: start: 20150609, end: 20150717
  13. LANSOPRAZOLE. [Concomitant]
     Active Substance: LANSOPRAZOLE
     Indication: GASTROOESOPHAGEAL REFLUX DISEASE
     Route: 048
     Dates: start: 20150718
  14. INFLUENZA HA VACCINE [Concomitant]
     Active Substance: INFLUENZA VIRUS VACCINE
     Dosage: DOSAGE IS UNCERTAIN.
     Route: 065
     Dates: start: 20151119, end: 20151119
  15. MOSAPRIDE CITRATE [Concomitant]
     Active Substance: MOSAPRIDE CITRATE
     Dosage: DOSAGE IS UNCERTAIN.
     Route: 048
     Dates: start: 20160912
  16. TSUMURA GOSHAJINKIGAN [Concomitant]
     Active Substance: HERBALS
     Dosage: FOR ETHICAL USE
     Route: 048
     Dates: start: 20150914, end: 20160522
  17. ALFACALCIDOL [Concomitant]
     Active Substance: ALFACALCIDOL
     Dosage: DOSAGE IS UNCERTAIN.
     Route: 065
     Dates: start: 20150522
  18. GLYCERIN. [Concomitant]
     Active Substance: GLYCERIN
     Dosage: DOSAGE IS UNCERTAIN.
     Route: 065
     Dates: start: 20150717, end: 20151207
  19. CALFINA [Concomitant]
     Active Substance: ALFACALCIDOL
     Indication: PROPHYLAXIS
     Route: 048
     Dates: start: 20150522
  20. TRAMAL [Concomitant]
     Active Substance: TRAMADOL
     Dosage: DOSAGE IS UNCERTAIN.
     Route: 048
     Dates: end: 20150524
  21. BESOFTEN [Concomitant]
     Active Substance: PENTOSAN POLYSULFATE SODIUM
     Dosage: DOSAGE IS UNCERTAIN.
     Route: 003
     Dates: start: 20150601, end: 20150612
  22. ZYPREXA [Concomitant]
     Active Substance: OLANZAPINE
     Dosage: DOSAGE IS UNCERTAIN.
     Route: 048
     Dates: start: 20160912
  23. ALECTINIB. [Suspect]
     Active Substance: ALECTINIB
     Route: 048
     Dates: start: 20160905
  24. URSODEOXYCHOLIC ACID [Suspect]
     Active Substance: URSODIOL
     Indication: ASPARTATE AMINOTRANSFERASE INCREASED
     Route: 048
     Dates: start: 20160229
  25. HACHIAZULE [Concomitant]
     Dosage: DOSAGE IS UNCERTAIN.
     Route: 048
     Dates: start: 20151007, end: 20160103
  26. TSUMURA SHAKUYAKUKANZOTO [Concomitant]
     Active Substance: HERBALS
     Dosage: DOSAGE IS UNCERTAIN.? FOR ETHICAL USE
     Route: 048
     Dates: start: 20160425, end: 20160522
  27. LYRICA [Concomitant]
     Active Substance: PREGABALIN
     Dosage: DOSAGE IS UNCERTAIN.
     Route: 048
     Dates: start: 20160905

REACTIONS (1)
  - Myositis [Not Recovered/Not Resolved]

NARRATIVE: CASE EVENT DATE: 20160425
